FAERS Safety Report 20616368 (Version 1)
Quarter: 2022Q1

REPORT INFORMATION
  Report Type: Spontaneous
  Country: IN (occurrence: IN)
  Receive Date: 20220321
  Receipt Date: 20220321
  Transmission Date: 20220423
  Serious: Yes (Other)
  Sender: FDA-Public Use
  Company Number: IN-PFIZER INC-2021270252

PATIENT
  Age: 64 Year
  Sex: Female

DRUGS (1)
  1. PALBOCICLIB [Suspect]
     Active Substance: PALBOCICLIB
     Indication: Breast cancer metastatic
     Dosage: 125 MG, ONCE A DAY
     Route: 048
     Dates: start: 20210109

REACTIONS (15)
  - Chest pain [Unknown]
  - COVID-19 [Unknown]
  - Bone pain [Unknown]
  - Renal pain [Unknown]
  - Blood creatinine increased [Unknown]
  - Malaise [Unknown]
  - Fatigue [Unknown]
  - Muscle strain [Unknown]
  - Vomiting [Unknown]
  - Restlessness [Unknown]
  - Alopecia [Unknown]
  - Fear [Recovering/Resolving]
  - Paraesthesia [Unknown]
  - Haemoglobin decreased [Unknown]
  - Lymphocyte percentage increased [Unknown]
